FAERS Safety Report 23697066 (Version 2)
Quarter: 2024Q2

REPORT INFORMATION
  Report Type: Spontaneous
  Country: US (occurrence: US)
  Receive Date: 20240402
  Receipt Date: 20240527
  Transmission Date: 20240716
  Serious: No
  Sender: FDA-Public Use
  Company Number: US-Vifor (International) Inc.-VIT-2024-02595

PATIENT
  Age: 47 Year
  Sex: Female
  Weight: 115.5 kg

DRUGS (5)
  1. MIRCERA [Suspect]
     Active Substance: METHOXY POLYETHYLENE GLYCOL-EPOETIN BETA
     Indication: Haemoglobin decreased
     Route: 042
     Dates: start: 20240209, end: 20240223
  2. VENOFER [Suspect]
     Active Substance: IRON SUCROSE
     Indication: Transferrin saturation decreased
     Dosage: SUBSEQUENT DOSES ON 12.FEB.2024, 14.FEB.2024, 16.FEB.2024, 19.FEB.2024, 28.FEB.2024, 13.MAR.2024, 15
     Route: 040
     Dates: start: 20240209, end: 20240322
  3. VENOFER [Suspect]
     Active Substance: IRON SUCROSE
     Dosage: SUBSEQUENT DOSES ON 01.APR.2024, 08.APR.2024, 15.APR.2024, 22.APR.2024, 29.APR.2024 AND 06.MAY.2024
     Route: 040
     Dates: start: 20240325
  4. CALCITRIOL [Concomitant]
     Active Substance: CALCITRIOL
     Indication: Hyperparathyroidism
     Route: 048
     Dates: start: 20240209, end: 20240311
  5. HEPARIN [Concomitant]
     Active Substance: HEPARIN SODIUM
     Indication: End stage renal disease
     Dosage: HEPARIN PUMP, 1000 UNITS PER HOUR DURING HD TREATMENT
     Dates: start: 20240205

REACTIONS (4)
  - Drug hypersensitivity [Recovered/Resolved]
  - Abdominal pain [Recovered/Resolved]
  - Headache [Recovered/Resolved]
  - Off label use [Unknown]

NARRATIVE: CASE EVENT DATE: 20240209
